FAERS Safety Report 18147760 (Version 1)
Quarter: 2020Q3

REPORT INFORMATION
  Report Type: Report from Study
  Country: US (occurrence: US)
  Receive Date: 20200813
  Receipt Date: 20200813
  Transmission Date: 20201103
  Serious: Yes (Other)
  Sender: FDA-Public Use
  Company Number: US-BAYER-2020-137813

PATIENT
  Age: 55 Year
  Sex: Male

DRUGS (2)
  1. STIVARGA [Suspect]
     Active Substance: REGORAFENIB
     Indication: COLORECTAL CANCER
     Dosage: 120 MG DAILY
     Dates: start: 20200710, end: 202007
  2. STIVARGA [Suspect]
     Active Substance: REGORAFENIB
     Indication: COLORECTAL CANCER
     Dosage: DAILY DOSE 80 MG FOR SEVEN DAYS
     Route: 048
     Dates: start: 20200703

REACTIONS (8)
  - Vomiting [None]
  - Hypertension [Unknown]
  - Nausea [None]
  - Off label use [None]
  - Erythema [Unknown]
  - Therapeutic response unexpected [Recovering/Resolving]
  - Dehydration [None]
  - Pain in extremity [Unknown]

NARRATIVE: CASE EVENT DATE: 20200703
